FAERS Safety Report 5604933-X (Version None)
Quarter: 2008Q1

REPORT INFORMATION
  Report Type: 
  Country: None (occurrence: None)
  Receive Date: 20080111
  Receipt Date: 20070914
  Transmission Date: 20080703
  Serious: Yes (Other)
  Sender: FDA-Public Use
  Company Number: HQWYE003724FEB06

PATIENT
  Sex: Female

DRUGS (8)
  1. PREMPRO [Suspect]
  2. CYCRIN [Suspect]
  3. ESTRACE [Suspect]
  4. ESTRADIOL [Suspect]
  5. ESTROGENS SOL/INJ [Suspect]
  6. MEDROXYPROGESTERONE [Suspect]
  7. PREMARIN [Suspect]
  8. PROVERA [Suspect]

REACTIONS (1)
  - BREAST CANCER [None]
